FAERS Safety Report 8562813-4 (Version None)
Quarter: 2012Q3

REPORT INFORMATION
  Report Type: 
  Country: None (occurrence: None)
  Receive Date: 20120802
  Receipt Date: 20120717
  Transmission Date: 20120928
  Serious: No
  Sender: FDA-Public Use
  Company Number: US-AMGEN-USASP2012044365

PATIENT
  Age: 50 Year
  Sex: Male

DRUGS (1)
  1. ENBREL [Suspect]
     Indication: RHEUMATOID ARTHRITIS
     Dosage: 50 MG, QWK
     Dates: start: 20120625

REACTIONS (8)
  - DYSGEUSIA [None]
  - AGITATION [None]
  - DRY MOUTH [None]
  - INJECTION SITE HAEMATOMA [None]
  - SENSATION OF FOREIGN BODY [None]
  - THROAT IRRITATION [None]
  - RESTLESSNESS [None]
  - NASOPHARYNGITIS [None]
